FAERS Safety Report 10355649 (Version 1)
Quarter: 2014Q3

REPORT INFORMATION
  Report Type: Spontaneous
  Country: BR (occurrence: BR)
  Receive Date: 20140731
  Receipt Date: 20140731
  Transmission Date: 20150326
  Serious: Yes (Other)
  Sender: FDA-Public Use
  Company Number: BR-ABBVIE-14P-020-1265551-00

PATIENT
  Sex: Female

DRUGS (5)
  1. MIDAZOLAM [Concomitant]
     Active Substance: MIDAZOLAM\MIDAZOLAM HYDROCHLORIDE
     Indication: INDUCTION OF ANAESTHESIA
  2. ULTANE [Suspect]
     Active Substance: SEVOFLURANE
  3. ULTANE [Suspect]
     Active Substance: SEVOFLURANE
     Indication: INDUCTION OF ANAESTHESIA
  4. OPIOID ANESTHETICS [Concomitant]
     Dosage: DOUBLE OF INITIAL DOSAGE
  5. OPIOID ANESTHETICS [Concomitant]
     Indication: INDUCTION OF ANAESTHESIA
     Dosage: UNKNOWN DOSE

REACTIONS (2)
  - Anaesthetic complication [Recovered/Resolved]
  - Unwanted awareness during anaesthesia [Recovered/Resolved]
